FAERS Safety Report 11800557 (Version 1)
Quarter: 2015Q4

REPORT INFORMATION
  Report Type: Spontaneous
  Country: US (occurrence: US)
  Receive Date: 20151204
  Receipt Date: 20151204
  Transmission Date: 20160305
  Serious: Yes (Hospitalization, Other)
  Sender: FDA-Public Use
  Company Number: US-ASTRAZENECA-2015SF19296

PATIENT
  Age: 69 Year
  Sex: Male
  Weight: 88.5 kg

DRUGS (3)
  1. METOPROLOL [Suspect]
     Active Substance: METOPROLOL
     Indication: BLOOD PRESSURE ABNORMAL
     Route: 048
  2. MOVANTIK [Suspect]
     Active Substance: NALOXEGOL OXALATE
     Indication: CONSTIPATION
     Route: 048
     Dates: start: 2015, end: 201507
  3. KADIAN [Concomitant]
     Active Substance: MORPHINE SULFATE
     Dates: start: 2007

REACTIONS (16)
  - Hypophagia [Unknown]
  - Constipation [Unknown]
  - Anaemia [Unknown]
  - Dysuria [Unknown]
  - Drug dose omission [Unknown]
  - Infrequent bowel movements [Unknown]
  - Abdominal distension [Not Recovered/Not Resolved]
  - Chest discomfort [Not Recovered/Not Resolved]
  - Weight fluctuation [Unknown]
  - Suture rupture [Unknown]
  - Red blood cell count decreased [Unknown]
  - Dysphagia [Unknown]
  - Bone marrow disorder [Unknown]
  - Road traffic accident [Unknown]
  - Skin cancer [Unknown]
  - White blood cell count decreased [Unknown]

NARRATIVE: CASE EVENT DATE: 2000
